FAERS Safety Report 8420936-4 (Version None)
Quarter: 2012Q2

REPORT INFORMATION
  Report Type: 
  Country: None (occurrence: None)
  Receive Date: 20120608
  Receipt Date: 20120601
  Transmission Date: 20120825
  Serious: Yes (Life-Threatening)
  Sender: FDA-Public Use
  Company Number: GB-PFIZER INC-2012132002

PATIENT
  Age: 41 Year
  Sex: Female
  Weight: 149.4 kg

DRUGS (5)
  1. SULFASALAZINE [Suspect]
     Indication: RHEUMATOID ARTHRITIS
     Dosage: 1.5 G, 1X/DAY
     Route: 048
     Dates: start: 20120303, end: 20120319
  2. CO-DYDRAMOL [Concomitant]
     Indication: PAIN
     Dosage: 2 DF, 4X/DAY
     Route: 048
  3. AMITRIPTYLINE HCL [Concomitant]
     Indication: PAIN
     Dosage: 30 MG, 1X/DAY
     Route: 048
  4. ACETAMINOPHEN [Concomitant]
     Indication: PAIN
     Dosage: 1 G, UNK
     Route: 048
  5. SULFASALAZINE [Suspect]
     Route: 048

REACTIONS (3)
  - SWELLING [None]
  - INTRACRANIAL PRESSURE INCREASED [None]
  - HEADACHE [None]
